FAERS Safety Report 14164264 (Version 2)
Quarter: 2017Q4

REPORT INFORMATION
  Report Type: Spontaneous
  Country: US (occurrence: US)
  Receive Date: 20171107
  Receipt Date: 20171116
  Transmission Date: 20180321
  Serious: Yes (Hospitalization)
  Sender: FDA-Public Use
  Company Number: US-AUROBINDO-AUR-APL-2017-43268

PATIENT
  Age: 69 Year
  Sex: Male

DRUGS (7)
  1. ROBITUSSIN DM [Interacting]
     Active Substance: DEXTROMETHORPHAN HYDROBROMIDE\GUAIFENESIN
     Indication: PRODUCT USED FOR UNKNOWN INDICATION
  2. DICLOFENAC [Concomitant]
     Active Substance: DICLOFENAC
     Indication: PRODUCT USED FOR UNKNOWN INDICATION
     Dosage: 75 MG, TWO TIMES A DAY
     Route: 048
  3. LOSARTAN. [Concomitant]
     Active Substance: LOSARTAN
     Indication: PRODUCT USED FOR UNKNOWN INDICATION
     Dosage: 25 MG, DAILY
     Route: 048
  4. GABAPENTIN. [Concomitant]
     Active Substance: GABAPENTIN
     Indication: PRODUCT USED FOR UNKNOWN INDICATION
     Dosage: 600 MG, 3 TIMES A DAY
     Route: 048
  5. METHADONE [Suspect]
     Active Substance: METHADONE HYDROCHLORIDE
     Indication: PRODUCT USED FOR UNKNOWN INDICATION
     Dosage: 150 MG, DAILY
     Route: 048
  6. FUROSEMIDE. [Concomitant]
     Active Substance: FUROSEMIDE
     Indication: PRODUCT USED FOR UNKNOWN INDICATION
     Dosage: 10 MG, DAILY
     Route: 048
  7. OMEPRAZOLE. [Concomitant]
     Active Substance: OMEPRAZOLE
     Indication: PRODUCT USED FOR UNKNOWN INDICATION
     Dosage: 40 MG, DAILY
     Route: 048

REACTIONS (17)
  - Irritability [Unknown]
  - Mood swings [Unknown]
  - Insomnia [Unknown]
  - Psychomotor hyperactivity [Unknown]
  - Delirium [Unknown]
  - Abnormal behaviour [Unknown]
  - Drug interaction [Unknown]
  - Bradyphrenia [Unknown]
  - Memory impairment [Unknown]
  - Tachyphrenia [Unknown]
  - Confusional state [Unknown]
  - Disturbance in attention [Unknown]
  - Toxicity to various agents [Unknown]
  - Cyclothymic disorder [Unknown]
  - Lethargy [Unknown]
  - Thinking abnormal [Unknown]
  - Delusion [Unknown]
